FAERS Safety Report 21759187 (Version 1)
Quarter: 2022Q4

REPORT INFORMATION
  Report Type: Spontaneous
  Country: FR (occurrence: FR)
  Receive Date: 20221221
  Receipt Date: 20221221
  Transmission Date: 20230113
  Serious: Yes (Other)
  Sender: FDA-Public Use
  Company Number: None

PATIENT
  Age: 33 Year
  Sex: Female

DRUGS (1)
  1. PAROXETINE MESYLATE [Suspect]
     Active Substance: PAROXETINE MESYLATE
     Indication: Perinatal depression
     Dosage: PAROXETINE (MESILATE DE) , UNIT DOSE : 10 MG , THERAPY END DATE : NASK
     Route: 065
     Dates: start: 202208

REACTIONS (1)
  - Accommodation disorder [Not Recovered/Not Resolved]

NARRATIVE: CASE EVENT DATE: 20220901
